FAERS Safety Report 5913671-5 (Version None)
Quarter: 2008Q4

REPORT INFORMATION
  Report Type: 
  Country: None (occurrence: None)
  Receive Date: 20081009
  Receipt Date: 20080929
  Transmission Date: 20090506
  Serious: Yes (Other)
  Sender: FDA-Public Use
  Company Number: US-AMGEN-US185784

PATIENT
  Sex: Female

DRUGS (3)
  1. ROMIPLOSTIM [Suspect]
     Indication: IDIOPATHIC THROMBOCYTOPENIC PURPURA
     Dates: start: 20060623
  2. PREDNISONE TAB [Suspect]
     Route: 048
     Dates: start: 20060616, end: 20060621
  3. PREDNISONE TAB [Suspect]
     Route: 048
     Dates: start: 20060622

REACTIONS (1)
  - THROMBOCYTHAEMIA [None]
